FAERS Safety Report 6542267-X (Version None)
Quarter: 2010Q1

REPORT INFORMATION
  Report Type: 
  Country: None (occurrence: None)
  Receive Date: 20100119
  Receipt Date: 20100111
  Transmission Date: 20100710
  Serious: Yes (Other)
  Sender: FDA-Public Use
  Company Number: US-BRISTOL-MYERS SQUIBB COMPANY-14937148

PATIENT
  Age: 32 Year
  Sex: Female

DRUGS (9)
  1. ATAZANAVIR [Interacting]
     Indication: ANTIRETROVIRAL THERAPY
     Dosage: APPROXIMATELY 15MONTHS
  2. RITONAVIR [Interacting]
     Indication: ANTIRETROVIRAL THERAPY
  3. QUETIAPINE [Interacting]
     Dosage: DOSE TITRATED WITH 100MG/D FOR 1 WEEK, 200MG/D FOR 1 WEEK AND THEN 400MG/D
  4. EMTRICITABINE [Suspect]
     Indication: ANTIRETROVIRAL THERAPY
  5. TENOFOVIR [Suspect]
     Indication: ANTIRETROVIRAL THERAPY
     Dosage: APPROXIMATELY 15MONTHS
  6. CITALOPRAM [Concomitant]
     Indication: ANXIETY DISORDER
  7. CLONAZEPAM [Concomitant]
     Indication: ANXIETY DISORDER
  8. METHADONE [Concomitant]
  9. DRONABINOL [Concomitant]
     Indication: INCREASED APPETITE

REACTIONS (3)
  - CONFUSIONAL STATE [None]
  - DRUG INTERACTION [None]
  - SEDATION [None]
